FAERS Safety Report 4758746-1 (Version None)
Quarter: 2005Q3

REPORT INFORMATION
  Report Type: 
  Country: None (occurrence: None)
  Receive Date: 20050831
  Receipt Date: 20050831
  Transmission Date: 20060218
  Serious: Yes (Hospitalization)
  Sender: FDA-Public Use
  Company Number: None

PATIENT
  Age: 52 Year
  Sex: Female
  Weight: 101.1521 kg

DRUGS (21)
  1. IRINOTECAN [Suspect]
     Indication: SMALL CELL LUNG CANCER STAGE UNSPECIFIED
     Dosage: 100 MG , OVER 30-90 MIN IV DAY 1 + 8  X 4 CYCLES
     Route: 042
     Dates: start: 20050802
  2. IRINOTECAN [Suspect]
     Indication: SMALL CELL LUNG CANCER STAGE UNSPECIFIED
     Dosage: 100 MG , OVER 30-90 MIN IV DAY 1 + 8  X 4 CYCLES
     Route: 042
     Dates: start: 20050809
  3. IRINOTECAN [Suspect]
     Indication: SMALL CELL LUNG CANCER STAGE UNSPECIFIED
     Dosage: 100 MG , OVER 30-90 MIN IV DAY 1 + 8  X 4 CYCLES
     Route: 042
     Dates: start: 20050823
  4. CARBOPLATIN [Suspect]
     Dosage: 735 MG IV DAY 1 X 4 CYCLES
     Route: 042
     Dates: start: 20050802
  5. CARBOPLATIN [Suspect]
     Dosage: 735 MG IV DAY 1 X 4 CYCLES
     Route: 042
     Dates: start: 20050823
  6. ATIVAN [Concomitant]
  7. DECADRON [Concomitant]
  8. ZOFRAN [Concomitant]
  9. PHENERAGAN [Concomitant]
  10. 80 DOCUSATE SOD [Concomitant]
  11. PROMETHAZINE [Concomitant]
  12. DIAZEPAM [Concomitant]
  13. TRAZODONE [Concomitant]
  14. CYCLOBENZAPRINE HCL [Concomitant]
  15. MORPHINE SULFATE [Concomitant]
  16. BUPROPION [Concomitant]
  17. LISINOPRIL [Concomitant]
  18. ADVAIR DISKUS 100/50 [Concomitant]
  19. ALBUTEROL [Concomitant]
  20. PRILOSEC OTC [Concomitant]
  21. ISONIAZID [Concomitant]

REACTIONS (4)
  - HYPOTENSION [None]
  - NAUSEA [None]
  - PYREXIA [None]
  - VOMITING [None]
